FAERS Safety Report 5256103-5 (Version None)
Quarter: 2007Q1

REPORT INFORMATION
  Report Type: 
  Country: None (occurrence: None)
  Receive Date: 20070306
  Receipt Date: 20070221
  Transmission Date: 20070707
  Serious: Yes (Other)
  Sender: FDA-Public Use
  Company Number: US-JNJFOC-20061006980

PATIENT
  Sex: Female
  Weight: 61.69 kg

DRUGS (1)
  1. ORTHO EVRA [Suspect]
     Indication: CONTRACEPTION
     Route: 062
     Dates: start: 20050101, end: 20051121

REACTIONS (1)
  - THROMBOPHLEBITIS SUPERFICIAL [None]
